FAERS Safety Report 4651020-3 (Version None)
Quarter: 2005Q2

REPORT INFORMATION
  Report Type: 
  Country: None (occurrence: None)
  Receive Date: 20050429
  Receipt Date: 20050416
  Transmission Date: 20051028
  Serious: Yes (Other)
  Sender: FDA-Public Use
  Company Number: 2005061093

PATIENT
  Sex: Female
  Weight: 73 kg

DRUGS (5)
  1. CELEBREX [Suspect]
     Indication: ARTHRITIS
     Dosage: 400 MG (200 MG, 2 IN 2 D), ORAL
     Route: 048
     Dates: start: 20040101, end: 20050101
  2. GABAPENTIN [Concomitant]
  3. TIZANIDINE HCL [Concomitant]
  4. ZALEPLON (ZALEPLON) [Concomitant]
  5. VICODIN (HYDROCHLORIDE BITARTRATE, PARCETAMOL) [Concomitant]

REACTIONS (8)
  - CARDIAC DISORDER [None]
  - CONDITION AGGRAVATED [None]
  - CONVULSION [None]
  - FATIGUE [None]
  - HEART RATE DECREASED [None]
  - HYPOTENSION [None]
  - HYPOTHYROIDISM [None]
  - LOSS OF CONSCIOUSNESS [None]
